FAERS Safety Report 18407815 (Version 2)
Quarter: 2020Q4

REPORT INFORMATION
  Report Type: Report from Study
  Country: CN (occurrence: CN)
  Receive Date: 20201020
  Receipt Date: 20201029
  Transmission Date: 20210114
  Serious: Yes (Hospitalization)
  Sender: FDA-Public Use
  Company Number: CN-ASTRAZENECA-2020SF24792

PATIENT
  Age: 51 Year
  Sex: Female

DRUGS (11)
  1. EBRT [Suspect]
     Active Substance: RADIATION THERAPY
     Indication: CERVIX CARCINOMA
     Route: 065
  2. DURVALUMAB. [Suspect]
     Active Substance: DURVALUMAB
     Indication: CERVIX CARCINOMA
     Route: 042
     Dates: start: 20200914, end: 20200914
  3. CISPLATIN. [Suspect]
     Active Substance: CISPLATIN
     Indication: CERVIX CARCINOMA
     Dosage: 40 MG/M
     Route: 042
     Dates: start: 20200817, end: 20200817
  4. DURVALUMAB. [Suspect]
     Active Substance: DURVALUMAB
     Indication: CERVIX CARCINOMA
     Route: 042
     Dates: start: 20200817, end: 20200817
  5. MAGNESIUM ISOGLYCYRRHIZINATE INJECTION [Concomitant]
     Indication: HEPATIC FUNCTION ABNORMAL
     Dosage: 100.0 MG OTHER
     Route: 042
     Dates: start: 20200925, end: 20200926
  6. CISPLATIN. [Suspect]
     Active Substance: CISPLATIN
     Indication: CERVIX CARCINOMA
     Dosage: 40 MG/M
     Route: 042
     Dates: start: 20200824, end: 20200824
  7. CISPLATIN. [Suspect]
     Active Substance: CISPLATIN
     Indication: CERVIX CARCINOMA
     Dosage: 40 MG/M
     Route: 042
     Dates: start: 20200831, end: 20200831
  8. CISPLATIN. [Suspect]
     Active Substance: CISPLATIN
     Indication: CERVIX CARCINOMA
     Dosage: 40 MG/M
     Route: 042
     Dates: start: 20200907, end: 20200907
  9. BRACHYTHERAPY [Suspect]
     Active Substance: RADIATION THERAPY
     Indication: CERVIX CARCINOMA
     Route: 065
  10. CISPLATIN. [Suspect]
     Active Substance: CISPLATIN
     Indication: CERVIX CARCINOMA
     Dosage: 40 MG/M
     Route: 042
     Dates: start: 20200914, end: 20200914
  11. REDUCED GLUTATHIONE FOR INJECTION [Concomitant]
     Indication: HEPATIC FUNCTION ABNORMAL
     Dosage: 1.8 G OTHER
     Route: 042
     Dates: start: 20200925, end: 20200930

REACTIONS (1)
  - Hepatic function abnormal [Recovering/Resolving]

NARRATIVE: CASE EVENT DATE: 20200925
